FAERS Safety Report 23100814 (Version 1)
Quarter: 2023Q4

REPORT INFORMATION
  Report Type: Spontaneous
  Country: US (occurrence: None)
  Receive Date: 20231021
  Receipt Date: 20231021
  Transmission Date: 20240110
  Serious: Yes (Hospitalization)
  Sender: FDA-Public Use
  Company Number: None

PATIENT
  Age: 82 Year
  Sex: Male

DRUGS (3)
  1. APIXABAN [Suspect]
     Active Substance: APIXABAN
     Dates: start: 20230222, end: 20230327
  2. ASPIRIN PAIN RELIVER [Suspect]
     Active Substance: ASPIRIN
     Dates: start: 20230301, end: 20230327
  3. COLCHICINE [Suspect]
     Active Substance: COLCHICINE

REACTIONS (4)
  - Gastrointestinal haemorrhage [None]
  - Anaemia [None]
  - Diverticulum [None]
  - Myelosuppression [None]

NARRATIVE: CASE EVENT DATE: 20230327
